FAERS Safety Report 9116860 (Version 2)
Quarter: 2013Q2

REPORT INFORMATION
  Report Type: Spontaneous
  Country: JP (occurrence: JP)
  Receive Date: 20130225
  Receipt Date: 20130403
  Transmission Date: 20140414
  Serious: Yes (Death, Other)
  Sender: FDA-Public Use
  Company Number: PHHY2013JP017712

PATIENT
  Age: 86 Year
  Sex: Male

DRUGS (13)
  1. RIVASTIGMIN [Suspect]
     Indication: DEMENTIA ALZHEIMER^S TYPE
     Dosage: 4.5 MG, ONCE A DAY
     Route: 062
     Dates: start: 20120822, end: 20121023
  2. RIVASTIGMIN [Suspect]
     Dosage: 9 MG,ONCE A DAY
     Route: 062
     Dates: start: 20121024, end: 20130202
  3. BAYASPIRIN [Concomitant]
     Dosage: UNK UKN, UNK
     Dates: start: 20020520
  4. BUP-4 [Concomitant]
     Dosage: UNK UKN, UNK
     Dates: start: 20111207
  5. VITAMEDIN                          /00176001/ [Concomitant]
  6. FUROSEMIDE [Concomitant]
  7. FRANDOL [Concomitant]
     Dosage: UNK UKN, UNK
     Dates: end: 200611
  8. FRANDOL [Concomitant]
     Dosage: 20 MG, DAILY
     Dates: start: 20120822
  9. MUCOSTA [Concomitant]
     Dosage: UNK UKN, UNK
     Dates: start: 20120425
  10. JU-KAMA [Concomitant]
     Dosage: UNK UKN, UNK
     Dates: start: 20080227
  11. PYRIDOXINE HYDROCHLORIDE [Concomitant]
     Dosage: UNK UKN, UNK
     Dates: start: 20120704
  12. HIRUDOID [Concomitant]
     Dosage: UNK UKN, UNK
     Dates: start: 20120822
  13. SENNOSIDE [Concomitant]

REACTIONS (3)
  - Myocardial infarction [Fatal]
  - Angina pectoris [Unknown]
  - Palpitations [Unknown]
